FAERS Safety Report 12486905 (Version 1)
Quarter: 2016Q2

REPORT INFORMATION
  Report Type: Other
  Country: US (occurrence: US)
  Receive Date: 20160621
  Receipt Date: 20160621
  Transmission Date: 20160815
  Serious: Yes (Other)
  Sender: FDA-Public Use
  Company Number: US-GUTHY-RENKER LLC-1054162

PATIENT
  Age: 22 Year
  Sex: Female

DRUGS (3)
  1. PROACTIV RENEWING CLEANSER [Suspect]
     Active Substance: BENZOYL PEROXIDE
     Route: 061
     Dates: start: 20160615
  2. PROACTIV SKIN LIGHTENING [Suspect]
     Active Substance: HYDROQUINONE
     Route: 061
     Dates: start: 20160615
  3. PROACTIV SOLUTION REPAIRING TREATMENT [Suspect]
     Active Substance: BENZOYL PEROXIDE
     Indication: ACNE
     Route: 061
     Dates: start: 20160615

REACTIONS (2)
  - Drug hypersensitivity [Recovering/Resolving]
  - Wrong technique in product usage process [None]

NARRATIVE: CASE EVENT DATE: 20160615
